FAERS Safety Report 8910080 (Version 2)
Quarter: 2012Q4

REPORT INFORMATION
  Report Type: 
  Country: ES (occurrence: ES)
  Receive Date: 20121114
  Receipt Date: 20121203
  Transmission Date: 20130627
  Serious: Yes (Other)
  Sender: FDA-Public Use
  Company Number: ES-ACTELION-A-CH2012-74323

PATIENT

DRUGS (1)
  1. TRACLEER [Suspect]
     Indication: EXPOSURE VIA SEMEN
     Route: 064

REACTIONS (2)
  - Trisomy 21 [Unknown]
  - Exposure via father [Unknown]
